FAERS Safety Report 11066660 (Version 1)
Quarter: 2015Q2

REPORT INFORMATION
  Report Type: Spontaneous
  Country: US (occurrence: None)
  Receive Date: 20150416
  Receipt Date: 20150416
  Transmission Date: 20150821
  Serious: Yes (Other)
  Sender: FDA-Public Use
  Company Number: 2014COV00002

PATIENT
  Sex: Male

DRUGS (5)
  1. DIGOXIN (DIGOXIN) UNKNOWN [Suspect]
     Active Substance: DIGOXIN
     Indication: DYSPNOEA
     Dates: start: 20140519
  2. ASPIRIN. [Concomitant]
     Active Substance: ASPIRIN
  3. COREG CR [Suspect]
     Active Substance: CARVEDILOL PHOSPHATE
     Route: 048
     Dates: start: 2012
  4. SPIRONOLACTONE. [Concomitant]
     Active Substance: SPIRONOLACTONE
  5. FRUSEMIDE [Concomitant]
     Active Substance: FUROSEMIDE

REACTIONS (5)
  - Drug interaction [None]
  - Heart rate decreased [None]
  - Glycosylated haemoglobin increased [None]
  - Dizziness [None]
  - Glucose tolerance impaired [None]
